FAERS Safety Report 7936144-7 (Version None)
Quarter: 2011Q4

REPORT INFORMATION
  Report Type: 
  Country: None (occurrence: None)
  Receive Date: 20111121
  Receipt Date: 20111109
  Transmission Date: 20120403
  Serious: Yes (Other)
  Sender: FDA-Public Use
  Company Number: 2011MA015654

PATIENT
  Age: 28 Year

DRUGS (1)
  1. DICLOFENAC SODIUM [Suspect]
     Dosage: 150 MG;QD;PO
     Route: 048

REACTIONS (3)
  - GASTRIC PH DECREASED [None]
  - GASTRIC HAEMORRHAGE [None]
  - GASTRIC MUCOSA ERYTHEMA [None]
